FAERS Safety Report 8476182-1 (Version None)
Quarter: 2012Q2

REPORT INFORMATION
  Report Type: 
  Country: None (occurrence: None)
  Receive Date: 20120628
  Receipt Date: 20120625
  Transmission Date: 20120825
  Serious: Yes (Hospitalization)
  Sender: FDA-Public Use
  Company Number: US-BAXTER-2012BAX008272

PATIENT
  Sex: Male

DRUGS (2)
  1. COUMADIN [Suspect]
  2. DIANEAL [Suspect]
     Indication: PERITONEAL DIALYSIS
     Route: 033

REACTIONS (4)
  - ANTICOAGULATION DRUG LEVEL ABOVE THERAPEUTIC [None]
  - MALNUTRITION [None]
  - GASTRIC DISORDER [None]
  - DYSPHAGIA [None]
